FAERS Safety Report 10382776 (Version 1)
Quarter: 2014Q3

REPORT INFORMATION
  Report Type: Spontaneous
  Country: US (occurrence: US)
  Receive Date: 20140813
  Receipt Date: 20140813
  Transmission Date: 20150326
  Serious: No
  Sender: FDA-Public Use
  Company Number: US-SA-2013SA096897

PATIENT
  Age: 7 Year
  Sex: Male
  Weight: 23.13 kg

DRUGS (9)
  1. LIDOCAINE/PRILOCAINE [Concomitant]
  2. EPINEPHRINE. [Concomitant]
     Active Substance: EPINEPHRINE
  3. CEPHALEXIN. [Concomitant]
     Active Substance: CEPHALEXIN
  4. DIPHENHYDRAMINE [Concomitant]
     Active Substance: DIPHENHYDRAMINE
  5. WATER FOR INJECTION [Concomitant]
     Active Substance: WATER
  6. FABRAZYME [Suspect]
     Active Substance: AGALSIDASE BETA
     Indication: FABRY^S DISEASE
     Dosage: DOSE : 25 MG?5 MG VIAL
     Route: 042
     Dates: start: 20130619
  7. HEPARIN [Concomitant]
     Active Substance: HEPARIN SODIUM
  8. NORMAL SALINE [Concomitant]
     Active Substance: SODIUM CHLORIDE
  9. SODIUM CHLORIDE. [Concomitant]
     Active Substance: SODIUM CHLORIDE

REACTIONS (1)
  - Rash [Recovered/Resolved]

NARRATIVE: CASE EVENT DATE: 20130913
